FAERS Safety Report 15426513 (Version 2)
Quarter: 2019Q1

REPORT INFORMATION
  Report Type: Spontaneous
  Country: FR (occurrence: FR)
  Receive Date: 20180925
  Receipt Date: 20190311
  Transmission Date: 20190417
  Serious: Yes (Hospitalization)
  Sender: FDA-Public Use
  Company Number: FR-MYLANLABS-2018M1070343

PATIENT
  Age: 65 Year
  Sex: Male
  Weight: 70 kg

DRUGS (12)
  1. POLARAMINE [Concomitant]
     Active Substance: DEXCHLORPHENIRAMINE MALEATE
     Indication: NON-HODGKIN^S LYMPHOMA
     Dosage: 5 MG, CYCLE
     Route: 040
     Dates: start: 20170816, end: 20170816
  2. DEXAMETHASONE. [Suspect]
     Active Substance: DEXAMETHASONE
     Dosage: 4 MG, CYCLE
     Route: 041
     Dates: start: 20170816, end: 20170816
  3. DIAMICRON [Concomitant]
     Active Substance: GLICLAZIDE
     Indication: DIABETES MELLITUS
     Dosage: 180 MG, QD
     Route: 048
  4. CYTARABINE. [Suspect]
     Active Substance: CYTARABINE
     Indication: NON-HODGKIN^S LYMPHOMA
     Dosage: 7200 MG, CYCLE
     Route: 041
     Dates: start: 20170613, end: 20170817
  5. ZOPHREN                            /00955302/ [Concomitant]
     Active Substance: ONDANSETRON
     Indication: VOMITING
     Dosage: 8 MG, QD
     Route: 041
     Dates: start: 20170816, end: 20170818
  6. LANTUS [Concomitant]
     Active Substance: INSULIN GLARGINE
     Indication: DIABETES MELLITUS
     Dosage: 12 IU, QD
     Route: 058
  7. OXALIPLATIN. [Suspect]
     Active Substance: OXALIPLATIN
     Dosage: 180 MG, CYCLE
     Route: 041
     Dates: start: 20170816, end: 20170816
  8. MABTHERA [Suspect]
     Active Substance: RITUXIMAB
     Dosage: 680 MG, CYCLE
     Route: 041
     Dates: start: 20170816, end: 20170816
  9. OXALIPLATIN. [Suspect]
     Active Substance: OXALIPLATIN
     Indication: NON-HODGKIN^S LYMPHOMA
     Dosage: 180 MG, CYCLE
     Route: 041
     Dates: start: 20170613, end: 20170816
  10. DEXAMETHASONE. [Suspect]
     Active Substance: DEXAMETHASONE
     Indication: NON-HODGKIN^S LYMPHOMA
     Dosage: 4 MG, CYCLE
     Route: 041
     Dates: start: 20170613, end: 20170816
  11. CYTARABINE. [Suspect]
     Active Substance: CYTARABINE
     Dosage: 7200 MG, CYCLE
     Route: 041
     Dates: start: 20170816, end: 20170817
  12. MABTHERA [Suspect]
     Active Substance: RITUXIMAB
     Indication: NON-HODGKIN^S LYMPHOMA
     Dosage: 680 MG, CYCLE
     Route: 041
     Dates: start: 20170613, end: 20170816

REACTIONS (4)
  - Chills [Recovered/Resolved]
  - Blood culture positive [Recovered/Resolved]
  - Hyperthermia [Recovered/Resolved]
  - Infection [Recovered/Resolved]

NARRATIVE: CASE EVENT DATE: 201707
